FAERS Safety Report 7812762-1 (Version None)
Quarter: 2011Q4

REPORT INFORMATION
  Report Type: 
  Country: None (occurrence: None)
  Receive Date: 20111011
  Receipt Date: 20110930
  Transmission Date: 20120403
  Serious: Yes (Other)
  Sender: FDA-Public Use
  Company Number: DSA_47793_2011

PATIENT
  Sex: Female

DRUGS (5)
  1. BUPROPION HYDROCHLORIDE [Suspect]
     Indication: PRODUCT USED FOR UNKNOWN INDICATION
     Dosage: (4500 MG X 1 DOSE ORAL)
     Dates: start: 20110929, end: 20110929
  2. ETHANOL (WINE) [Suspect]
     Indication: PRODUCT USED FOR UNKNOWN INDICATION
     Dosage: (DF X 1 DOSE)
     Dates: start: 20110929, end: 20110929
  3. HOGGAR NIGHT (HOGGAR NIGHT) (NOT SPECIFIED) [Suspect]
     Indication: PRODUCT USED FOR UNKNOWN INDICATION
     Dosage: (250 MG X 1DOSE ORAL)
     Route: 048
     Dates: start: 20110929, end: 20110929
  4. UNSPECIFIED BENZODIAZEPINES [Suspect]
     Indication: PRODUCT USED FOR UNKNOWN INDICATION
     Dosage: (DF X 1 DOSE)
     Dates: start: 20110929, end: 20110929
  5. VIVINOX (VIVINOX - MISTLETOE + PASSION FLOWER+ HOPS + VALARIAN ROOT)) [Suspect]
     Indication: PRODUCT USED FOR UNKNOWN INDICATION
     Dosage: (2250 MG X 1 DOSE ORAL)
     Route: 048
     Dates: start: 20110929, end: 20110929

REACTIONS (3)
  - POISONING [None]
  - SUICIDE ATTEMPT [None]
  - INTENTIONAL OVERDOSE [None]
